FAERS Safety Report 17480843 (Version 1)
Quarter: 2020Q1

REPORT INFORMATION
  Report Type: Spontaneous
  Country: GB (occurrence: GB)
  Receive Date: 20200301
  Receipt Date: 20200301
  Transmission Date: 20200409
  Serious: Yes (Life-Threatening)
  Sender: FDA-Public Use
  Company Number: GB-TEVA-2020-GB-1192312

PATIENT
  Age: 72 Year
  Sex: Male
  Weight: 86.35 kg

DRUGS (18)
  1. CASSIA [Concomitant]
     Dosage: AT NIGHT
  2. METOCLOPRAMIDE. [Concomitant]
     Active Substance: METOCLOPRAMIDE
     Dosage: THREE TIMES A DAY
  3. PARACETAMOL [Concomitant]
     Active Substance: ACETAMINOPHEN
     Dosage: 4 G
  4. ANORO [Concomitant]
     Active Substance: UMECLIDINIUM BROMIDE\VILANTEROL TRIFENATATE
     Dosage: 1 DOSAGE FORMS DAILY; IN THE MORNING 55/22
     Route: 055
  5. DAPTOMYCIN. [Suspect]
     Active Substance: DAPTOMYCIN
     Indication: LIVER ABSCESS
     Dosage: 900 MG
     Route: 042
     Dates: start: 20200130, end: 20200212
  6. SALBUTAMOL [Concomitant]
     Active Substance: ALBUTEROL
     Dosage: 4 DOSAGE FORMS DAILY; FOUR TIMES A DAY.
     Route: 055
  7. CASPOFUNGIN [Concomitant]
     Active Substance: CASPOFUNGIN
     Indication: FUNGAL INFECTION
     Dosage: 70 MG
  8. MUPIROCIN. [Concomitant]
     Active Substance: MUPIROCIN
     Dosage: BOTH NOSTRILS THREE TIMES PER DAY
     Route: 045
  9. LINEZOLID. [Concomitant]
     Active Substance: LINEZOLID
     Dosage: 1200 MG
     Dates: end: 20200130
  10. LANSOPRAZOLE. [Concomitant]
     Active Substance: LANSOPRAZOLE
     Dosage: 30 MILLIGRAM DAILY; IN THE MORNING, 30 MG
  11. CANDESARTAN. [Concomitant]
     Active Substance: CANDESARTAN
     Dosage: 16 MILLIGRAM DAILY; IN THE MORNING
  12. LACTULOSE. [Concomitant]
     Active Substance: LACTULOSE
     Dosage: 30 ML
  13. MEROPENEM. [Concomitant]
     Active Substance: MEROPENEM
     Dosage: 3 G
  14. ONDANSETRON [Concomitant]
     Active Substance: ONDANSETRON
     Dosage: 12 MILLIGRAM DAILY; THREE TIMES A DAY, 4 MG
  15. TINZAPARIN [Concomitant]
     Active Substance: TINZAPARIN
     Dosage: 5000 IU
  16. ATORVASTATIN [Concomitant]
     Active Substance: ATORVASTATIN
     Dosage: 20 MILLIGRAM DAILY; AT NIGHT,
  17. CHLORHEXIDINE GLUCONATE. [Concomitant]
     Active Substance: CHLORHEXIDINE GLUCONATE
     Dosage: SCRUB 4 FOUR TIMES PER DAY
  18. TAZOCIN [Concomitant]
     Active Substance: PIPERACILLIN SODIUM\TAZOBACTAM SODIUM
     Indication: ESCHERICHIA BACTERAEMIA
     Dosage: 13.5 G

REACTIONS (1)
  - Rhabdomyolysis [Not Recovered/Not Resolved]

NARRATIVE: CASE EVENT DATE: 20200212
